FAERS Safety Report 23497328 (Version 1)
Quarter: 2024Q1

REPORT INFORMATION
  Report Type: Spontaneous
  Country: US (occurrence: US)
  Receive Date: 20240208
  Receipt Date: 20240208
  Transmission Date: 20240410
  Serious: No
  Sender: FDA-Public Use
  Company Number: US-SA-SAC20240202001286

PATIENT

DRUGS (1)
  1. XENPOZYME [Suspect]
     Active Substance: OLIPUDASE ALFA-RPCP
     Indication: Niemann-Pick disease
     Dosage: 3 MG/KG
     Route: 042
     Dates: start: 202307

REACTIONS (3)
  - Pruritus [Unknown]
  - Erythema [Unknown]
  - Condition aggravated [Unknown]
